FAERS Safety Report 21365449 (Version 1)
Quarter: 2022Q3

REPORT INFORMATION
  Report Type: Report from Study
  Country: GB (occurrence: None)
  Receive Date: 20220922
  Receipt Date: 20220922
  Transmission Date: 20221027
  Serious: Yes (Hospitalization)
  Sender: FDA-Public Use
  Company Number: GB-Merck Healthcare KGaA-9351773

PATIENT
  Sex: Male

DRUGS (3)
  1. MAVENCLAD [Suspect]
     Active Substance: CLADRIBINE
     Indication: Multiple sclerosis
     Dosage: YEAR ONE MONTH ONE WEEK ONE THERAPY: 2 TABLETS ON DAY 1-3 AND 1 TABLET ON DAYS 4-5
     Route: 048
     Dates: start: 20210726
  2. MAVENCLAD [Suspect]
     Active Substance: CLADRIBINE
     Dosage: YEAR ONE MONTH TWO WEEK ONE THERAPY
     Route: 048
     Dates: start: 20210823, end: 20210826
  3. MAVENCLAD [Suspect]
     Active Substance: CLADRIBINE
     Dosage: YEAR TWO MONTH ONE WEEK ONE THERAPY
     Route: 048
     Dates: start: 20220815

REACTIONS (1)
  - Myocardial infarction [Unknown]
